FAERS Safety Report 4642098-1 (Version None)
Quarter: 2005Q2

REPORT INFORMATION
  Report Type: 
  Country: None (occurrence: None)
  Receive Date: 20050420
  Receipt Date: 20050401
  Transmission Date: 20051028
  Serious: Yes (Hospitalization, Other)
  Sender: FDA-Public Use
  Company Number: USA050494738

PATIENT
  Age: 60 Year
  Sex: Female

DRUGS (5)
  1. CYMBALTA [Suspect]
     Indication: DEPRESSION
     Dosage: 60 MG DAY
     Dates: start: 20041201, end: 20050328
  2. PROZAC [Suspect]
     Indication: DEPRESSION
  3. LEXAPRO [Concomitant]
  4. MAXZIDE [Concomitant]
  5. POTASSIUM CHLORIDE [Concomitant]

REACTIONS (20)
  - ABDOMINAL DISTENSION [None]
  - ABNORMAL FAECES [None]
  - BOWEL MOVEMENT IRREGULARITY [None]
  - CONTUSION [None]
  - COUGH [None]
  - CRYING [None]
  - DYSPNOEA [None]
  - HEART RATE INCREASED [None]
  - HYPERHIDROSIS [None]
  - HYPERTENSION [None]
  - HYPOAESTHESIA [None]
  - INAPPROPRIATE AFFECT [None]
  - INSOMNIA [None]
  - MOOD SWINGS [None]
  - NERVE COMPRESSION [None]
  - PSYCHOMOTOR HYPERACTIVITY [None]
  - RETROPERITONEAL HAEMORRHAGE [None]
  - SKIN DISORDER [None]
  - THROMBOSIS [None]
  - VOCAL CORD PARALYSIS [None]
